FAERS Safety Report 20999765 (Version 1)
Quarter: 2022Q2

REPORT INFORMATION
  Report Type: Spontaneous
  Country: US (occurrence: US)
  Receive Date: 20220623
  Receipt Date: 20220623
  Transmission Date: 20220721
  Serious: Yes (Hospitalization)
  Sender: FDA-Public Use
  Company Number: US-TEVA-2022-US-2047549

PATIENT
  Age: 7 Decade
  Sex: Female

DRUGS (2)
  1. EPINEPHRINE [Suspect]
     Active Substance: EPINEPHRINE
     Indication: Periarthritis
     Dosage: INTRA-ARTICULAR PAIN PUMP; AT A FLOW RATE OF 2 ML/HR.
     Route: 014
  2. BUPIVACAINE [Suspect]
     Active Substance: BUPIVACAINE
     Indication: Periarthritis
     Dosage: INTRA-ARTICULAR PAIN PUMP; AT A FLOW RATE OF 2 ML/HR.
     Route: 014

REACTIONS (1)
  - Chondrolysis [Unknown]
